FAERS Safety Report 11852419 (Version 3)
Quarter: 2016Q1

REPORT INFORMATION
  Report Type: Spontaneous
  Country: US (occurrence: US)
  Receive Date: 20151218
  Receipt Date: 20160126
  Transmission Date: 20160526
  Serious: Yes (Hospitalization)
  Sender: FDA-Public Use
  Company Number: US-PFIZER INC-2015450837

PATIENT
  Age: 62 Year
  Sex: Male
  Weight: 91 kg

DRUGS (1)
  1. DOXAZOSIN MESILATE [Suspect]
     Active Substance: DOXAZOSIN MESYLATE
     Indication: BENIGN PROSTATIC HYPERPLASIA
     Dosage: 8 MG, 1X/DAY

REACTIONS (6)
  - Sleep disorder [Recovered/Resolved]
  - Feeling abnormal [Recovered/Resolved]
  - Flushing [Recovered/Resolved]
  - Palpitations [Recovered/Resolved]
  - Medication error [Recovered/Resolved]
  - Feeling of body temperature change [Recovered/Resolved]

NARRATIVE: CASE EVENT DATE: 20151214
